FAERS Safety Report 23239046 (Version 1)
Quarter: 2023Q4

REPORT INFORMATION
  Report Type: Spontaneous
  Country: US (occurrence: US)
  Receive Date: 20231129
  Receipt Date: 20231129
  Transmission Date: 20240110
  Serious: No
  Sender: FDA-Public Use
  Company Number: US-ELI_LILLY_AND_COMPANY-US202311015374

PATIENT
  Age: 89 Year
  Sex: Female

DRUGS (1)
  1. FORTEO [Suspect]
     Active Substance: TERIPARATIDE
     Indication: Product used for unknown indication
     Dosage: 20 UG, UNKNOWN
     Route: 058
     Dates: start: 202205, end: 20231126

REACTIONS (4)
  - Vomiting [Recovered/Resolved]
  - Dizziness [Recovered/Resolved]
  - Illness [Unknown]
  - Nausea [Recovered/Resolved]

NARRATIVE: CASE EVENT DATE: 20231126
